FAERS Safety Report 7479922-3 (Version None)
Quarter: 2011Q2

REPORT INFORMATION
  Report Type: 
  Country: None (occurrence: None)
  Receive Date: 20110516
  Receipt Date: 20110504
  Transmission Date: 20111010
  Serious: Yes (Hospitalization, Other)
  Sender: FDA-Public Use
  Company Number: US-BIOGENIDEC-2011BI010340

PATIENT
  Age: 48 Year
  Sex: Female
  Weight: 99 kg

DRUGS (1)
  1. TYSABRI [Suspect]
     Indication: MULTIPLE SCLEROSIS
     Route: 042
     Dates: start: 20070101

REACTIONS (5)
  - VISION BLURRED [None]
  - HEART RATE ABNORMAL [None]
  - BLOOD PRESSURE FLUCTUATION [None]
  - MULTIPLE SCLEROSIS RELAPSE [None]
  - COMPLEX PARTIAL SEIZURES [None]
